FAERS Safety Report 12926614 (Version 1)
Quarter: 2016Q4

REPORT INFORMATION
  Report Type: Spontaneous
  Country: US (occurrence: US)
  Receive Date: 20161109
  Receipt Date: 20161109
  Transmission Date: 20170207
  Serious: Yes (Other)
  Sender: FDA-Public Use
  Company Number: GXBR2016US003361

PATIENT
  Sex: Female
  Weight: 56.69 kg

DRUGS (3)
  1. AMIODARONE HYDROCHLORIDE. [Suspect]
     Active Substance: AMIODARONE HYDROCHLORIDE
     Indication: HEART RATE IRREGULAR
     Dosage: 200 MG, QD
     Route: 048
     Dates: start: 201605
  2. CLARITIN [Concomitant]
     Active Substance: LORATADINE
     Indication: HYPERSENSITIVITY
     Dosage: UNK DF, PRN
     Route: 065
  3. TYLENOL [Concomitant]
     Active Substance: ACETAMINOPHEN
     Indication: PAIN
     Dosage: UNK DF, PRN
     Route: 065

REACTIONS (9)
  - Thrombosis [Unknown]
  - Onychoclasis [Unknown]
  - Vision blurred [Not Recovered/Not Resolved]
  - Night sweats [Unknown]
  - Nausea [Unknown]
  - Constipation [Unknown]
  - Hair injury [Unknown]
  - Vascular rupture [Unknown]
  - Visual impairment [Not Recovered/Not Resolved]
